FAERS Safety Report 5405562-3 (Version None)
Quarter: 2007Q3

REPORT INFORMATION
  Report Type: 
  Country: None (occurrence: None)
  Receive Date: 20070803
  Receipt Date: 20070724
  Transmission Date: 20080115
  Serious: Yes (Other)
  Sender: FDA-Public Use
  Company Number: GB-PFIZER INC-2007062756

PATIENT
  Age: 37 Year
  Sex: Female
  Weight: 80 kg

DRUGS (2)
  1. VARENICLINE TABLETS [Suspect]
     Indication: DYSPEPSIA
     Dosage: TEXT:1 MG
     Route: 048
     Dates: start: 20070130, end: 20070219
  2. LANSOPRAZOLE [Concomitant]
     Route: 048

REACTIONS (7)
  - AGGRESSION [None]
  - ANGER [None]
  - DEPRESSION [None]
  - FATIGUE [None]
  - HEADACHE [None]
  - NIGHTMARE [None]
  - SUICIDAL IDEATION [None]
